FAERS Safety Report 8811905 (Version 1)
Quarter: 2012Q4

REPORT INFORMATION
  Report Type: Spontaneous
  Country: CA (occurrence: None)
  Receive Date: 20120924
  Receipt Date: 20120924
  Transmission Date: 20130627
  Serious: Yes (Other)
  Sender: FDA-Public Use
  Company Number: 2012HGS-003639

PATIENT
  Age: 52 Year
  Sex: Female
  Weight: 154 kg

DRUGS (5)
  1. BENLYSTA [Suspect]
     Indication: LUPUS ERYTHEMATOSUS SYSTEMIC
     Route: 041
     Dates: start: 20120425
  2. BENLYSTA [Suspect]
     Indication: LUPUS ERYTHEMATOSUS SYSTEMIC
     Route: 041
     Dates: start: 20120720
  3. BENLYSTA [Suspect]
     Indication: LUPUS ERYTHEMATOSUS SYSTEMIC
     Route: 041
     Dates: start: 20120816
  4. CORTISONE (CORTISONE) (CORTISONE) [Concomitant]
  5. PERCOCET (TYLOX/00446701/) (PARACETAMOL, OXYCODONE HYDROCHLORIDE, OXYCODONE TEREPHTHALATE) [Concomitant]

REACTIONS (25)
  - Gastroenteritis viral [None]
  - Platelet count decreased [None]
  - Abdominal pain [None]
  - Nausea [None]
  - Vomiting [None]
  - Diarrhoea [None]
  - Asthenia [None]
  - Fatigue [None]
  - Decreased appetite [None]
  - Headache [None]
  - Swelling [None]
  - Malaise [None]
  - Gastric disorder [None]
  - Hepatomegaly [None]
  - Arthralgia [None]
  - Infusion site bruising [None]
  - Drug effect decreased [None]
  - Burning sensation [None]
  - Systemic lupus erythematosus [None]
  - Disease recurrence [None]
  - Poor venous access [None]
  - Venous injury [None]
  - Haemorrhage [None]
  - Inflammation [None]
  - Pain [None]
